FAERS Safety Report 16116902 (Version 1)
Quarter: 2019Q1

REPORT INFORMATION
  Report Type: Spontaneous
  Country: US (occurrence: US)
  Receive Date: 20190326
  Receipt Date: 20190326
  Transmission Date: 20190418
  Serious: Yes (Other)
  Sender: FDA-Public Use
  Company Number: US-CIPLA LTD.-2019US01555

PATIENT

DRUGS (5)
  1. GABAPENTIN. [Suspect]
     Active Substance: GABAPENTIN
     Indication: BACK PAIN
     Dosage: 100 MILLIGRAM, TID (CAPSULE)
     Route: 048
  2. GABAPENTIN. [Suspect]
     Active Substance: GABAPENTIN
     Dosage: UNK (DOSE INCREASED), 1 IN THE MORNING, 2 AT LUNCH AND 2 AT NIGHT
     Route: 065
  3. LYRICA [Concomitant]
     Active Substance: PREGABALIN
     Indication: BACK PAIN
     Dosage: 50 MILLIGRAM, QD (CAPSULE)
     Route: 048
     Dates: start: 201812
  4. GABAPENTIN. [Suspect]
     Active Substance: GABAPENTIN
     Dosage: 2 DOSAGE FORM, TID (CAPSULES)
     Route: 048
  5. GABAPENTIN. [Suspect]
     Active Substance: GABAPENTIN
     Dosage: 1 DOSAGE FORM, QD (ONE AT NIGHT)
     Route: 065

REACTIONS (5)
  - Feeling abnormal [Not Recovered/Not Resolved]
  - Gait inability [Unknown]
  - Nausea [Unknown]
  - Drug ineffective [Unknown]
  - Balance disorder [Unknown]

NARRATIVE: CASE EVENT DATE: 201811
